FAERS Safety Report 6717256-2 (Version None)
Quarter: 2010Q2

REPORT INFORMATION
  Report Type: 
  Country: None (occurrence: None)
  Receive Date: 20100510
  Receipt Date: 20100506
  Transmission Date: 20101027
  Serious: Yes (Death)
  Sender: FDA-Public Use
  Company Number: PHHY2010CO29327

PATIENT
  Age: 74 Year
  Sex: Female

DRUGS (2)
  1. ACLASTA [Suspect]
     Indication: OSTEOPOROSIS
     Dosage: 5 MG
     Route: 042
     Dates: start: 20090418
  2. ACLASTA [Suspect]
     Dosage: 5 MG
     Route: 042
     Dates: start: 20100506

REACTIONS (1)
  - DEATH [None]
